FAERS Safety Report 23990434 (Version 1)
Quarter: 2024Q2

REPORT INFORMATION
  Report Type: Spontaneous
  Country: US (occurrence: US)
  Receive Date: 20240619
  Receipt Date: 20240619
  Transmission Date: 20240715
  Serious: No
  Sender: FDA-Public Use
  Company Number: US-PRESTIGE-202312-US-003688

PATIENT
  Sex: Female

DRUGS (1)
  1. NIX [Suspect]
     Active Substance: PERMETHRIN
     Indication: Lice infestation
     Dosage: APPLIED TWICE
     Route: 061

REACTIONS (3)
  - Application site burn [Recovering/Resolving]
  - Skin injury [Recovering/Resolving]
  - Inappropriate schedule of product administration [Unknown]
